FAERS Safety Report 6234543-5 (Version None)
Quarter: 2009Q2

REPORT INFORMATION
  Report Type: 
  Country: None (occurrence: None)
  Receive Date: 20090615
  Receipt Date: 20090528
  Transmission Date: 20091009
  Serious: Yes (Other)
  Sender: FDA-Public Use
  Company Number: 8047345

PATIENT
  Age: 68 Year
  Sex: Female

DRUGS (3)
  1. PREDNISOLONE [Suspect]
     Indication: INTERSTITIAL LUNG DISEASE
     Dosage: 30 MG 1/D
  2. AZATHIOPRINE [Suspect]
     Indication: INTERSTITIAL LUNG DISEASE
     Dosage: 50 MG 2/D
  3. AZATHIOPRINE [Suspect]
     Indication: INTERSTITIAL LUNG DISEASE

REACTIONS (1)
  - PANCYTOPENIA [None]
